FAERS Safety Report 6610022-8 (Version None)
Quarter: 2010Q1

REPORT INFORMATION
  Report Type: 
  Country: None (occurrence: None)
  Receive Date: 20100302
  Receipt Date: 20100217
  Transmission Date: 20100710
  Serious: Yes (Death)
  Sender: FDA-Public Use
  Company Number: JP-ROCHE-687189

PATIENT
  Age: 70 Year
  Sex: Male

DRUGS (4)
  1. DENOSINE IV [Suspect]
     Indication: CYTOMEGALOVIRUS VIRAEMIA
     Route: 065
  2. METHOTREXATE [Suspect]
     Indication: STEM CELL TRANSPLANT
     Route: 065
  3. TACROLIMUS HYDRATE [Suspect]
     Indication: STEM CELL TRANSPLANT
     Route: 065
  4. MELPHALAN [Suspect]
     Indication: STEM CELL TRANSPLANT
     Route: 065

REACTIONS (2)
  - ORGANISING PNEUMONIA [None]
  - RESPIRATORY FAILURE [None]
